FAERS Safety Report 15569752 (Version 1)
Quarter: 2018Q4

REPORT INFORMATION
  Report Type: Spontaneous
  Country: US (occurrence: US)
  Receive Date: 20181031
  Receipt Date: 20181031
  Transmission Date: 20190205
  Serious: No
  Sender: FDA-Public Use
  Company Number: US-PFIZER INC-2018434975

PATIENT
  Age: 44 Year
  Sex: Male
  Weight: 149.6 kg

DRUGS (2)
  1. LYRICA [Suspect]
     Active Substance: PREGABALIN
     Indication: LUMBAR SPINAL STENOSIS
  2. LYRICA [Suspect]
     Active Substance: PREGABALIN
     Indication: NERVE COMPRESSION
     Dosage: 75 MG, 2X/DAY
     Dates: start: 20181004

REACTIONS (4)
  - Flushing [Unknown]
  - Hypoaesthesia [Unknown]
  - Burning sensation [Unknown]
  - Feeling hot [Unknown]

NARRATIVE: CASE EVENT DATE: 20181007
